FAERS Safety Report 7328958-1 (Version None)
Quarter: 2011Q1

REPORT INFORMATION
  Report Type: 
  Country: None (occurrence: None)
  Receive Date: 20110225
  Receipt Date: 20110225
  Transmission Date: 20110831
  Serious: No
  Sender: FDA-Public Use
  Company Number: None

PATIENT
  Age: 68 Year

DRUGS (1)
  1. VENOFER [Suspect]
     Dates: start: 20101112, end: 20101112

REACTIONS (3)
  - SKIN DISCOLOURATION [None]
  - INFUSION SITE EXTRAVASATION [None]
  - PAIN [None]
